FAERS Safety Report 24900537 (Version 1)
Quarter: 2025Q1

REPORT INFORMATION
  Report Type: Spontaneous
  Country: RU (occurrence: None)
  Receive Date: 20250129
  Receipt Date: 20250129
  Transmission Date: 20250409
  Serious: Yes (Disabling)
  Sender: FDA-CTU
  Company Number: None

PATIENT
  Age: 22 Year
  Sex: Male
  Weight: 90 kg

DRUGS (8)
  1. FLUOXETINE [Suspect]
     Active Substance: FLUOXETINE HYDROCHLORIDE
     Route: 048
     Dates: start: 20170111, end: 20180111
  2. LICORICE [Concomitant]
     Active Substance: LICORICE
  3. bacopa [Concomitant]
  4. monnieri [Concomitant]
  5. LECITHIN [Concomitant]
     Active Substance: LECITHIN
  6. ST. JOHN^S WORT [Concomitant]
     Active Substance: ST. JOHN^S WORT
  7. INOSITOL [Concomitant]
     Active Substance: INOSITOL
  8. ARGININE [Concomitant]
     Active Substance: ARGININE

REACTIONS (1)
  - Sexual dysfunction [None]

NARRATIVE: CASE EVENT DATE: 20170111
